FAERS Safety Report 13862898 (Version 2)
Quarter: 2018Q1

REPORT INFORMATION
  Report Type: Spontaneous
  Country: US (occurrence: US)
  Receive Date: 20170814
  Receipt Date: 20180116
  Transmission Date: 20180508
  Serious: No
  Sender: FDA-Public Use
  Company Number: US-LUPIN PHARMACEUTICALS INC.-2017-04239

PATIENT
  Age: 13 Year
  Sex: Male
  Weight: 33.56 kg

DRUGS (1)
  1. CEFDINIR FOR ORAL SUSPENSION USP 250 MG/5 ML [Suspect]
     Active Substance: CEFDINIR
     Indication: PHARYNGITIS STREPTOCOCCAL
     Dosage: 9.4 ML, QD
     Route: 048
     Dates: start: 20170719, end: 20170721

REACTIONS (2)
  - Pruritus [Unknown]
  - Urticaria [Recovered/Resolved]

NARRATIVE: CASE EVENT DATE: 20170721
